FAERS Safety Report 7647903-2 (Version None)
Quarter: 2011Q3

REPORT INFORMATION
  Report Type: 
  Country: None (occurrence: None)
  Receive Date: 20110801
  Receipt Date: 20110718
  Transmission Date: 20111222
  Serious: Yes (Hospitalization)
  Sender: FDA-Public Use
  Company Number: FR-SANOFI-AVENTIS-2011SA045496

PATIENT
  Age: 48 Year
  Sex: Female

DRUGS (11)
  1. POTASSIUM CHLORIDE [Suspect]
     Route: 048
     Dates: start: 20110512, end: 20110517
  2. ATARAX [Suspect]
     Indication: INSOMNIA
     Route: 048
     Dates: start: 20110507, end: 20110517
  3. CALCIUM CARBONATE [Suspect]
     Indication: HYPOCALCAEMIA
     Route: 048
     Dates: start: 20110511, end: 20110603
  4. LOVENOX [Suspect]
     Route: 058
     Dates: start: 20110512, end: 20110603
  5. SOLU-MEDROL [Suspect]
     Route: 042
     Dates: start: 20110511, end: 20110512
  6. PREDNISOLONE [Suspect]
     Route: 048
     Dates: start: 20110512, end: 20110518
  7. SOLU-MEDROL [Suspect]
     Route: 042
     Dates: start: 20110519, end: 20110524
  8. POTASSIUM CHLORIDE [Suspect]
     Indication: HYPOKALAEMIA
     Route: 048
     Dates: start: 20110505, end: 20110510
  9. ACETAMINOPHEN [Suspect]
     Route: 048
     Dates: start: 20110503, end: 20110517
  10. LOVENOX [Suspect]
     Indication: PULMONARY EMBOLISM
     Route: 058
     Dates: start: 20110503, end: 20110512
  11. ACETAMINOPHEN [Suspect]
     Route: 048
     Dates: start: 20110503, end: 20110517

REACTIONS (1)
  - MIXED LIVER INJURY [None]
